FAERS Safety Report 4727031-6 (Version None)
Quarter: 2005Q3

REPORT INFORMATION
  Report Type: 
  Country: None (occurrence: None)
  Receive Date: 20050726
  Receipt Date: 20050726
  Transmission Date: 20060218
  Serious: Yes (Hospitalization)
  Sender: FDA-Public Use
  Company Number: None

PATIENT
  Age: 44 Year
  Sex: Male
  Weight: 74.8435 kg

DRUGS (3)
  1. PREDNISONE [Suspect]
     Indication: RASH
     Dosage: PER TAPER DO DAILY ORAL
     Route: 048
     Dates: start: 20050712, end: 20050718
  2. PREDNISONE [Suspect]
     Dosage: 50 MG DAILY ORAL
     Route: 048
     Dates: start: 20050706, end: 20050711
  3. IBUPROFEN [Concomitant]

REACTIONS (4)
  - ABDOMINAL PAIN UPPER [None]
  - FAECES DISCOLOURED [None]
  - GASTROINTESTINAL HAEMORRHAGE [None]
  - HAEMATOCHEZIA [None]
